FAERS Safety Report 11132207 (Version 1)
Quarter: 2015Q2

REPORT INFORMATION
  Report Type: Spontaneous
  Country: GB (occurrence: GB)
  Receive Date: 20150522
  Receipt Date: 20150522
  Transmission Date: 20150821
  Serious: Yes (Other)
  Sender: FDA-Public Use
  Company Number: GB-ELI_LILLY_AND_COMPANY-GB201505005291

PATIENT
  Sex: Female

DRUGS (1)
  1. HUMULIN 70/30 [Suspect]
     Active Substance: INSULIN HUMAN
     Indication: DIABETES MELLITUS
     Dosage: UNK
     Route: 065
     Dates: start: 2008

REACTIONS (6)
  - Incorrect product storage [Unknown]
  - Hypoglycaemic coma [Unknown]
  - Insomnia [Unknown]
  - Neoplasm malignant [Unknown]
  - Injection site haemorrhage [Unknown]
  - Acute febrile neutrophilic dermatosis [Unknown]
